FAERS Safety Report 8206460-2 (Version None)
Quarter: 2012Q1

REPORT INFORMATION
  Report Type: 
  Country: None (occurrence: None)
  Receive Date: 20120313
  Receipt Date: 20120305
  Transmission Date: 20120608
  Serious: Yes (Other)
  Sender: FDA-Public Use
  Company Number: DE-ASTRAZENECA-2012SE15580

PATIENT
  Sex: Female

DRUGS (3)
  1. MIRTAZAPINE [Concomitant]
     Route: 048
  2. SEROQUEL [Suspect]
     Route: 048
  3. GABAPENTIN [Concomitant]
     Route: 048

REACTIONS (3)
  - PULMONARY FIBROSIS [None]
  - BRONCHITIS CHRONIC [None]
  - ALVEOLITIS [None]
